FAERS Safety Report 9182472 (Version 1)
Quarter: 2013Q1

REPORT INFORMATION
  Report Type: Spontaneous
  Country: US (occurrence: None)
  Receive Date: 20130321
  Receipt Date: 20130321
  Transmission Date: 20140127
  Serious: No
  Sender: FDA-Public Use
  Company Number: None

PATIENT
  Age: 60 Year
  Sex: Female
  Weight: 77.11 kg

DRUGS (1)
  1. METRONIDAZOLEL [Suspect]
     Dosage: 500 MG 1 EVERY 8 HOURS
     Dates: start: 20130131, end: 20130211

REACTIONS (13)
  - Coordination abnormal [None]
  - Tremor [None]
  - Gait disturbance [None]
  - Headache [None]
  - Decreased appetite [None]
  - Paraesthesia [None]
  - Pruritus [None]
  - Muscle disorder [None]
  - Chest discomfort [None]
  - Agitation [None]
  - Depression [None]
  - Irritability [None]
  - Diarrhoea [None]
